FAERS Safety Report 5317088-6 (Version None)
Quarter: 2007Q2

REPORT INFORMATION
  Report Type: 
  Country: None (occurrence: None)
  Receive Date: 20070504
  Receipt Date: 20070423
  Transmission Date: 20071010
  Serious: Yes (Hospitalization)
  Sender: FDA-Public Use
  Company Number: RU-ROCHE-493194

PATIENT
  Age: 15 Year
  Sex: Male
  Weight: 60 kg

DRUGS (4)
  1. ROACCUTAN [Suspect]
     Indication: ACNE
     Dosage: DOSING REGIMEN DAILY.
     Route: 048
     Dates: start: 20070320, end: 20070411
  2. AZITROCIN [Concomitant]
     Indication: ACNE
     Dosage: REPORTED AS AZITROMYCIN/AZITRAL
     Dates: start: 20070320
  3. SODIUM THIOSULFATE [Concomitant]
     Indication: ACNE
     Route: 042
     Dates: start: 20070320
  4. ASCORBIC ACID [Concomitant]
     Indication: ACNE
     Route: 030
     Dates: start: 20070320

REACTIONS (3)
  - CYLINDRURIA [None]
  - LEUKOCYTURIA [None]
  - PROTEINURIA [None]
